FAERS Safety Report 24901369 (Version 1)
Quarter: 2025Q1

REPORT INFORMATION
  Report Type: Spontaneous
  Country: US (occurrence: None)
  Receive Date: 20250129
  Receipt Date: 20250129
  Transmission Date: 20250409
  Serious: Yes (Hospitalization)
  Sender: FDA-CTU
  Company Number: None

PATIENT
  Sex: Female
  Weight: 96.16 kg

DRUGS (10)
  1. LISINOPRIL [Suspect]
     Active Substance: LISINOPRIL
     Indication: Blood pressure measurement
     Dosage: FREQUENCY : DAILY;?
     Route: 048
     Dates: start: 20241224
  2. NEXIUM [Concomitant]
     Active Substance: ESOMEPRAZOLE MAGNESIUM
  3. BRILINTA [Concomitant]
     Active Substance: TICAGRELOR
  4. SPRIONLATE [Concomitant]
  5. AMLODIPINE [Concomitant]
     Active Substance: AMLODIPINE BESYLATE
  6. ROSVASTIN [Concomitant]
  7. ASPIRIN [Concomitant]
     Active Substance: ASPIRIN
  8. TYLENOL [Concomitant]
     Active Substance: ACETAMINOPHEN
  9. ZYRTEC [Concomitant]
     Active Substance: CETIRIZINE HYDROCHLORIDE
  10. FLONASE [Concomitant]
     Active Substance: FLUTICASONE PROPIONATE

REACTIONS (1)
  - Angioedema [None]

NARRATIVE: CASE EVENT DATE: 20241224
